FAERS Safety Report 4758962-9 (Version None)
Quarter: 2005Q3

REPORT INFORMATION
  Report Type: 
  Country: None (occurrence: None)
  Receive Date: 20050826
  Receipt Date: 20050815
  Transmission Date: 20060218
  Serious: Yes (Hospitalization)
  Sender: FDA-Public Use
  Company Number: 2005116284

PATIENT
  Sex: 0

DRUGS (5)
  1. SOLU-MEDROL [Suspect]
     Indication: ANAPHYLACTIC SHOCK
     Dosage: 125 MG (125 MCG, DAILY), INTRAVENOUS
     Route: 042
     Dates: start: 20050810
  2. SOLU-CORTEF [Concomitant]
  3. CELESTAMINE TAB [Concomitant]
  4. BOSMIN (EPINEPHRINE HYDROCHLORIDE) [Concomitant]
  5. ALL OTHER THERAPEUTIC PRODUCTS (ALL OTHER THERAPEUTIC PRODUCTS) [Concomitant]

REACTIONS (2)
  - ERYTHEMA [None]
  - URTICARIA [None]
